FAERS Safety Report 13644621 (Version 1)
Quarter: 2017Q2

REPORT INFORMATION
  Report Type: Spontaneous
  Country: US (occurrence: US)
  Receive Date: 20170612
  Receipt Date: 20170612
  Transmission Date: 20170830
  Serious: No
  Sender: FDA-Public Use
  Company Number: US-ROCHE-1039058

PATIENT
  Sex: Female

DRUGS (2)
  1. XELODA [Suspect]
     Active Substance: CAPECITABINE
     Indication: BREAST CANCER
     Dosage: 2 WEEKS ON AND THEN 1 WEEK OFF
     Route: 048
     Dates: start: 201110
  2. XELODA [Suspect]
     Active Substance: CAPECITABINE
     Dosage: 1 WEEK ON AND 1 WEEK OFF
     Route: 065
     Dates: start: 20111215

REACTIONS (2)
  - Tooth abscess [Recovered/Resolved]
  - Rash [Recovering/Resolving]
